FAERS Safety Report 17805420 (Version 2)
Quarter: 2020Q3

REPORT INFORMATION
  Report Type: Report from Study
  Country: None (occurrence: US)
  Receive Date: 20200520
  Receipt Date: 20200713
  Transmission Date: 20201102
  Serious: Yes (Hospitalization, Other)
  Sender: FDA-Public Use
  Company Number: US-ABBVIE-19K-163-3138459-00

PATIENT
  Sex: Female

DRUGS (4)
  1. IMBRUVICA [Suspect]
     Active Substance: IBRUTINIB
     Route: 048
     Dates: start: 20190301
  2. IMBRUVICA [Suspect]
     Active Substance: IBRUTINIB
     Indication: CHRONIC LYMPHOCYTIC LEUKAEMIA
     Dosage: 420 MG, QD
     Route: 048
     Dates: start: 20190305
  3. IMBRUVICA [Suspect]
     Active Substance: IBRUTINIB
     Dosage: 420 MG, QD
     Route: 048
     Dates: start: 20190402
  4. IMBRUVICA [Suspect]
     Active Substance: IBRUTINIB
     Route: 048

REACTIONS (16)
  - Asthenia [Unknown]
  - Blood potassium decreased [Unknown]
  - White blood cell count increased [Unknown]
  - Blood immunoglobulin M decreased [Recovering/Resolving]
  - Arthropod bite [Unknown]
  - Blood immunoglobulin G decreased [Not Recovered/Not Resolved]
  - Pollakiuria [Unknown]
  - Initial insomnia [Unknown]
  - Blood pressure increased [Recovered/Resolved]
  - White blood cell count decreased [Unknown]
  - Contusion [Unknown]
  - Hypotension [Unknown]
  - Blood viscosity increased [Unknown]
  - Bradycardia [Unknown]
  - Atrial fibrillation [Recovered/Resolved]
  - Urine odour abnormal [Unknown]
